FAERS Safety Report 10868464 (Version 1)
Quarter: 2015Q1

REPORT INFORMATION
  Report Type: Spontaneous
  Country: US (occurrence: US)
  Receive Date: 20150225
  Receipt Date: 20150225
  Transmission Date: 20150721
  Serious: No
  Sender: FDA-Public Use
  Company Number: US-PFIZER INC-2015066690

PATIENT
  Sex: Female
  Weight: 63 kg

DRUGS (1)
  1. ZOLOFT [Suspect]
     Active Substance: SERTRALINE HYDROCHLORIDE
     Indication: INSOMNIA
     Dosage: 25 MG, UNK
     Dates: start: 201412, end: 201502

REACTIONS (7)
  - Toothache [Unknown]
  - Tinnitus [Unknown]
  - Bruxism [Unknown]
  - Ageusia [Recovered/Resolved]
  - Weight decreased [Unknown]
  - Blood sodium decreased [Unknown]
  - Dysgeusia [Unknown]
